FAERS Safety Report 25739355 (Version 3)
Quarter: 2025Q4

REPORT INFORMATION
  Report Type: Spontaneous
  Country: EU (occurrence: EU)
  Receive Date: 20250829
  Receipt Date: 20251105
  Transmission Date: 20260117
  Serious: Yes (Life-Threatening)
  Sender: BAUSCH AND LOMB
  Company Number: EU-BAUSCH-BH-2025-016704

PATIENT
  Age: 16 Month
  Sex: Male
  Weight: 10 kg

DRUGS (11)
  1. HYDROCORTISONE [Suspect]
     Active Substance: HYDROCORTISONE
     Indication: Steroid therapy
     Route: 065
  2. AMINOPHYLLINE [Suspect]
     Active Substance: AMINOPHYLLINE
     Indication: Product used for unknown indication
     Dosage: 0.8 MG/KG/H
     Route: 065
  3. TOBRAMYCIN [Suspect]
     Active Substance: TOBRAMYCIN
     Indication: Antibiotic therapy
     Dosage: 6 MG/KG, DAILY
     Route: 065
  4. TOBRAMYCIN [Suspect]
     Active Substance: TOBRAMYCIN
     Indication: Evidence based treatment
  5. VECURONIUM BROMIDE [Suspect]
     Active Substance: VECURONIUM BROMIDE
     Indication: Endotracheal intubation
     Dosage: 0.1 MG/KG
     Route: 065
  6. VECURONIUM BROMIDE [Suspect]
     Active Substance: VECURONIUM BROMIDE
     Dosage: 0.1 MG/KG, HOUR
     Route: 065
  7. MIDAZOLAM [Concomitant]
     Active Substance: MIDAZOLAM
     Indication: Endotracheal intubation
     Dosage: 0.3 MG/KG
  8. MIDAZOLAM [Concomitant]
     Active Substance: MIDAZOLAM
     Dosage: 0.2 MG/KG, DAILY (INFUSION)
  9. CEFTAZIDIME [Concomitant]
     Active Substance: CEFTAZIDIME
     Indication: Antibiotic therapy
     Dosage: 50 MG/KG, 3X/DAY
  10. CEFTAZIDIME [Concomitant]
     Active Substance: CEFTAZIDIME
     Indication: Evidence based treatment
  11. REMIFENTANIL [Concomitant]
     Active Substance: REMIFENTANIL
     Indication: Endotracheal intubation
     Dosage: 0.2 UG/MIN

REACTIONS (1)
  - Intensive care unit acquired weakness [Recovered/Resolved]
